FAERS Safety Report 17694021 (Version 2)
Quarter: 2020Q2

REPORT INFORMATION
  Report Type: Report from Study
  Country: AU (occurrence: AU)
  Receive Date: 20200422
  Receipt Date: 20200503
  Transmission Date: 20200714
  Serious: No
  Sender: FDA-Public Use
  Company Number: AU-TAKEDA-2019TUS053329

PATIENT
  Sex: Female

DRUGS (2)
  1. VEDOLIZUMAB [Suspect]
     Active Substance: VEDOLIZUMAB
     Indication: COLITIS ULCERATIVE
     Dosage: UNK
     Route: 065
  2. VEDOLIZUMAB [Suspect]
     Active Substance: VEDOLIZUMAB
     Dosage: UNK UNK, Q4WEEKS
     Route: 065

REACTIONS (4)
  - Therapeutic response decreased [Unknown]
  - Hidradenitis [Unknown]
  - Stress [Unknown]
  - Colitis ulcerative [Unknown]
